FAERS Safety Report 8175829-7 (Version None)
Quarter: 2012Q1

REPORT INFORMATION
  Report Type: 
  Country: None (occurrence: None)
  Receive Date: 20120228
  Receipt Date: 20120216
  Transmission Date: 20120608
  Serious: Yes (Disabling)
  Sender: FDA-Public Use
  Company Number: 2012SP008807

PATIENT
  Age: 45 Year
  Sex: Female
  Weight: 80 kg

DRUGS (4)
  1. MIRTAZAPINE [Suspect]
     Indication: PRODUCT USED FOR UNKNOWN INDICATION
     Dates: start: 20120112
  2. HYDROXYZINE [Concomitant]
  3. MAXITRAM SR (TRAMADOL HYDROCHLORIDE) [Concomitant]
  4. BENDROFLUMETHIAZIDE [Concomitant]

REACTIONS (3)
  - DYSPHAGIA [None]
  - SWOLLEN TONGUE [None]
  - ANGIOEDEMA [None]
